FAERS Safety Report 8312964-4 (Version None)
Quarter: 2012Q2

REPORT INFORMATION
  Report Type: 
  Country: None (occurrence: None)
  Receive Date: 20120426
  Receipt Date: 20120130
  Transmission Date: 20120825
  Serious: No
  Sender: FDA-Public Use
  Company Number: US-MYLANLABS-2012S1001491

PATIENT
  Sex: Male

DRUGS (1)
  1. NISOLDIPINE [Suspect]
     Route: 048
     Dates: start: 20111101, end: 20120122

REACTIONS (6)
  - ENERGY INCREASED [None]
  - DYSPEPSIA [None]
  - DRY THROAT [None]
  - VOMITING [None]
  - INSOMNIA [None]
  - OROPHARYNGEAL PAIN [None]
